FAERS Safety Report 5235456-8 (Version None)
Quarter: 2007Q1

REPORT INFORMATION
  Report Type: 
  Country: None (occurrence: None)
  Receive Date: 20061208
  Receipt Date: 20060706
  Transmission Date: 20070707
  Serious: Yes (Other)
  Sender: FDA-Public Use
  Company Number: 2006UW13972

PATIENT
  Sex: Male

DRUGS (2)
  1. CRESTOR [Suspect]
     Dosage: SWITCHED FROM LIPITOR TO CRESTOR ONE WEEK AGO
     Dates: start: 20060630
  2. LIPITOR /GB/ [Concomitant]

REACTIONS (1)
  - SEXUAL DYSFUNCTION [None]
